FAERS Safety Report 4955832-8 (Version None)
Quarter: 2006Q1

REPORT INFORMATION
  Report Type: 
  Country: None (occurrence: None)
  Receive Date: 20060323
  Receipt Date: 20060315
  Transmission Date: 20060701
  Serious: Yes (Hospitalization)
  Sender: FDA-Public Use
  Company Number: FR 2006 0039

PATIENT
  Sex: Female

DRUGS (1)
  1. DOTAREM   -MEGLUMINE GADOTERATE [Suspect]
     Indication: NUCLEAR MAGNETIC RESONANCE IMAGING
     Dosage: 40 MG PER DAY INTRA-VEINOUS
     Route: 042
     Dates: start: 20051125

REACTIONS (1)
  - RENAL FAILURE ACUTE [None]
